FAERS Safety Report 13307805 (Version 1)
Quarter: 2017Q1

REPORT INFORMATION
  Report Type: Report from Study
  Country: CA (occurrence: CA)
  Receive Date: 20170308
  Receipt Date: 20170308
  Transmission Date: 20170428
  Serious: No
  Sender: FDA-Public Use
  Company Number: CA-HLSUS-2016-CA-000657

PATIENT
  Age: 61 Year
  Sex: Female

DRUGS (3)
  1. EPIVAL [Concomitant]
     Active Substance: DIVALPROEX SODIUM
     Dosage: 750 MG BED TIME
     Route: 048
     Dates: start: 201606
  2. SEROQUEL [Concomitant]
     Active Substance: QUETIAPINE FUMARATE
     Dosage: 50 MG
     Route: 048
  3. CLOZARIL [Suspect]
     Active Substance: CLOZAPINE
     Indication: SCHIZOPHRENIA
     Dosage: 250 MG
     Route: 048
     Dates: start: 201606, end: 201612

REACTIONS (8)
  - Sedation [Unknown]
  - Salivary hypersecretion [Unknown]
  - Vertigo [Unknown]
  - Hyperphagia [Unknown]
  - Oedema [Recovered/Resolved]
  - White blood cell count decreased [Not Recovered/Not Resolved]
  - Neutropenia [Not Recovered/Not Resolved]
  - Refusal of treatment by patient [Unknown]

NARRATIVE: CASE EVENT DATE: 201607
